FAERS Safety Report 7230176-2 (Version None)
Quarter: 2011Q1

REPORT INFORMATION
  Report Type: 
  Country: None (occurrence: None)
  Receive Date: 20110118
  Receipt Date: 20110104
  Transmission Date: 20110831
  Serious: Yes (Hospitalization)
  Sender: FDA-Public Use
  Company Number: DE-RANBAXY-2011RR-40994

PATIENT
  Age: 34 Year
  Sex: Female
  Weight: 81 kg

DRUGS (2)
  1. PARACETAMOL [Suspect]
     Indication: WOUND COMPLICATION
     Dosage: UNK
     Dates: start: 20100701, end: 20100812
  2. IBUPROFEN [Concomitant]
     Indication: WOUND COMPLICATION
     Dosage: UNK
     Dates: start: 20100701, end: 20100812

REACTIONS (3)
  - ACUTE HEPATIC FAILURE [None]
  - ENCEPHALOPATHY [None]
  - COAGULOPATHY [None]
